FAERS Safety Report 21045753 (Version 1)
Quarter: 2022Q3

REPORT INFORMATION
  Report Type: Spontaneous
  Country: CN (occurrence: CN)
  Receive Date: 20220706
  Receipt Date: 20220706
  Transmission Date: 20221027
  Serious: Yes (Other)
  Sender: FDA-Public Use
  Company Number: CN-BEH-2022146592

PATIENT
  Age: 48 Year
  Sex: Female

DRUGS (2)
  1. ALBURX [Suspect]
     Active Substance: ALBUMIN HUMAN
     Indication: Nutritional supplementation
     Dosage: 10 GRAM, OD
     Route: 041
     Dates: start: 20220309, end: 20220309
  2. ALBURX [Suspect]
     Active Substance: ALBUMIN HUMAN
     Indication: Asthenia

REACTIONS (3)
  - Hypoglycaemia [Recovered/Resolved]
  - Dizziness [Recovered/Resolved]
  - Asthenia [Recovered/Resolved]

NARRATIVE: CASE EVENT DATE: 20220309
